FAERS Safety Report 4833322-0 (Version None)
Quarter: 2005Q4

REPORT INFORMATION
  Report Type: 
  Country: None (occurrence: None)
  Receive Date: 20051117
  Receipt Date: 20051104
  Transmission Date: 20060501
  Serious: Yes (Hospitalization, Other)
  Sender: FDA-Public Use
  Company Number: 2003125632

PATIENT
  Age: 30 Year
  Sex: Male

DRUGS (6)
  1. VFEND [Suspect]
     Indication: ASPERGILLOSIS
     Dosage: ORAL
     Route: 048
     Dates: start: 20030919, end: 20031028
  2. VINCRISTINE [Suspect]
     Indication: LYMPHOCYTIC LEUKAEMIA
     Dosage: INTRAVENOUS
     Route: 042
     Dates: start: 20030929, end: 20030929
  3. L-ASPARAGINASE                     (ASPARAGINASE) [Concomitant]
  4. ARACYTINE    (CYTARABINE) [Concomitant]
  5. DEXAMETHASONE            (DEXAMEHASONE) [Concomitant]
  6. LENOGRASTIM            (LENOGRASTIM) [Concomitant]

REACTIONS (3)
  - DRUG INTERACTION [None]
  - HEMIPLEGIA [None]
  - NEUROTOXICITY [None]
